FAERS Safety Report 4307435-6 (Version None)
Quarter: 2004Q1

REPORT INFORMATION
  Report Type: 
  Country: None (occurrence: None)
  Receive Date: 20040226
  Receipt Date: 20040214
  Transmission Date: 20041129
  Serious: Yes (Life-Threatening)
  Sender: FDA-Public Use
  Company Number: 2004AP00531

PATIENT
  Age: 55 Year
  Sex: Female
  Weight: 54.5 kg

DRUGS (7)
  1. DIPRIVAN [Suspect]
     Indication: INDUCTION OF ANAESTHESIA
     Dosage: 130 MG DAILY IV
     Route: 042
     Dates: start: 20040129, end: 20040129
  2. FENTANEST [Concomitant]
  3. MUSCULAX [Concomitant]
  4. SEVOFRANE [Concomitant]
  5. ZANTAC [Concomitant]
  6. CHLOR-TRIMETON [Concomitant]
  7. LIDOCAINE [Concomitant]

REACTIONS (2)
  - ASTHMA [None]
  - RESPIRATORY FAILURE [None]
